FAERS Safety Report 8293458-1 (Version None)
Quarter: 2012Q2

REPORT INFORMATION
  Report Type: 
  Country: None (occurrence: None)
  Receive Date: 20120417
  Receipt Date: 20120410
  Transmission Date: 20120825
  Serious: Yes (Hospitalization)
  Sender: FDA-Public Use
  Company Number: US-MERCK-1204USA01540

PATIENT
  Age: 66 Year
  Sex: Female

DRUGS (2)
  1. VYTORIN [Suspect]
     Indication: BLOOD CHOLESTEROL INCREASED
     Route: 048
     Dates: start: 20080101, end: 20120315
  2. EVISTA [Concomitant]
     Route: 065

REACTIONS (7)
  - MUSCULAR WEAKNESS [None]
  - PAIN IN EXTREMITY [None]
  - CHEST PAIN [None]
  - LOWER RESPIRATORY TRACT INFECTION [None]
  - BLOOD CREATINE PHOSPHOKINASE ABNORMAL [None]
  - ABASIA [None]
  - DYSSTASIA [None]
